FAERS Safety Report 9592470 (Version 1)
Quarter: 2013Q3

REPORT INFORMATION
  Report Type: Spontaneous
  Country: US (occurrence: None)
  Receive Date: 20130930
  Receipt Date: 20130930
  Transmission Date: 20140515
  Serious: Yes (Other)
  Sender: FDA-Public Use
  Company Number: 1000046340

PATIENT
  Age: 65 Year
  Sex: Female

DRUGS (4)
  1. LINZESS [Suspect]
     Indication: IRRITABLE BOWEL SYNDROME
     Dosage: 145 MCG (145 MCG, 1 IN 1 D), ORAL
     Route: 048
     Dates: start: 20130627
  2. DICYLCOMINE (DICYLCOMINE) (DICYLCOMINE) [Concomitant]
  3. GABAPENTIN (GABAPENTIN) (GABAPENTIN) [Concomitant]
  4. KLONOPIN [Concomitant]

REACTIONS (1)
  - Abdominal pain upper [None]
